FAERS Safety Report 6643041-6 (Version None)
Quarter: 2010Q1

REPORT INFORMATION
  Report Type: 
  Country: None (occurrence: None)
  Receive Date: 20100319
  Receipt Date: 20100311
  Transmission Date: 20100710
  Serious: Yes (Hospitalization)
  Sender: FDA-Public Use
  Company Number: B0641354A

PATIENT
  Age: 75 Year
  Sex: Male

DRUGS (6)
  1. AUGMENTIN [Suspect]
     Indication: UPPER RESPIRATORY TRACT INFECTION
     Route: 048
     Dates: start: 20091026, end: 20091028
  2. IBUPROFEN [Suspect]
     Indication: UPPER RESPIRATORY TRACT INFECTION
     Route: 048
     Dates: start: 20091026, end: 20091028
  3. ADIRO [Concomitant]
     Route: 065
     Dates: start: 19890101, end: 20090825
  4. UNIKET [Concomitant]
     Route: 065
     Dates: start: 20060101
  5. ALLOPURINOL [Concomitant]
     Route: 065
     Dates: start: 20060101
  6. OMNIC [Concomitant]
     Route: 065
     Dates: start: 20060101

REACTIONS (2)
  - IDIOPATHIC THROMBOCYTOPENIC PURPURA [None]
  - RENAL FAILURE ACUTE [None]
